FAERS Safety Report 17191726 (Version 1)
Quarter: 2019Q4

REPORT INFORMATION
  Report Type: Spontaneous
  Country: CN (occurrence: CN)
  Receive Date: 20191223
  Receipt Date: 20191223
  Transmission Date: 20200122
  Serious: Yes (Other)
  Sender: FDA-Public Use
  Company Number: CN-PFIZER INC-2019548596

PATIENT
  Age: 57 Year
  Sex: Female
  Weight: 60 kg

DRUGS (2)
  1. METHYLPREDNISOLONE SODIUM SUCCINATE. [Suspect]
     Active Substance: METHYLPREDNISOLONE SODIUM SUCCINATE
     Indication: HORMONE THERAPY
     Dosage: 500 MG, 1X/DAY
     Route: 041
     Dates: start: 20191211, end: 20191214
  2. PANTOPRAZOLE SODIUM. [Concomitant]
     Active Substance: PANTOPRAZOLE SODIUM
     Indication: THERAPEUTIC PROCEDURE
     Dosage: 80 MG, 1X/DAY
     Route: 041
     Dates: start: 20191212, end: 20191214

REACTIONS (5)
  - Pyrexia [Recovering/Resolving]
  - Pruritus [Recovering/Resolving]
  - Swelling face [Recovering/Resolving]
  - Rash [Recovering/Resolving]
  - Dyspnoea [Recovering/Resolving]

NARRATIVE: CASE EVENT DATE: 20191214
